FAERS Safety Report 5373701-9 (Version None)
Quarter: 2007Q2

REPORT INFORMATION
  Report Type: 
  Country: None (occurrence: None)
  Receive Date: 20070615
  Receipt Date: 20060925
  Transmission Date: 20071010
  Serious: Yes (Other)
  Sender: FDA-Public Use
  Company Number: 200616360US

PATIENT
  Age: 41 Year
  Sex: Male

DRUGS (3)
  1. LANTUS [Suspect]
     Indication: DIABETES MELLITUS
     Dosage: 24 U QD SC
     Route: 058
  2. PARACETAMOL [Concomitant]
  3. HYDROCODONE BITARTATE (VICODIN) [Concomitant]

REACTIONS (1)
  - HYPERGLYCAEMIA [None]
